FAERS Safety Report 10538995 (Version 2)
Quarter: 2014Q4

REPORT INFORMATION
  Report Type: Spontaneous
  Country: FR (occurrence: FR)
  Receive Date: 20141023
  Receipt Date: 20141103
  Transmission Date: 20150529
  Serious: Yes (Other)
  Sender: FDA-Public Use
  Company Number: FR-PFIZER INC-2014286831

PATIENT
  Age: 56 Year
  Sex: Male

DRUGS (13)
  1. SELOKEN [Suspect]
     Active Substance: METOPROLOL
     Dosage: 50 MG, 2X/DAY
     Route: 048
     Dates: start: 20140924, end: 20141001
  2. OMNIPAQUE [Suspect]
     Active Substance: IOHEXOL
     Dosage: 110 ML, 1X/DAY
     Route: 041
     Dates: start: 20140922, end: 20140922
  3. RISORDAN [Suspect]
     Active Substance: ISOSORBIDE DINITRATE
     Dosage: 1 MG, SINGLE
     Route: 022
     Dates: start: 20140922, end: 20140922
  4. HYPNOVEL [Suspect]
     Active Substance: MIDAZOLAM\MIDAZOLAM HYDROCHLORIDE
     Dosage: 1 DF, 1X/DAY
     Route: 041
     Dates: start: 20140922, end: 20140922
  5. KARDEGIC [Concomitant]
     Active Substance: ASPIRIN LYSINE
     Dosage: 75 MG, 1X/DAY
     Route: 048
     Dates: start: 20140924
  6. LOVENOX [Suspect]
     Active Substance: ENOXAPARIN SODIUM
     Dosage: 0.4 ML, 1X/DAY
     Route: 058
     Dates: start: 20140922, end: 20140926
  7. REOPRO [Suspect]
     Active Substance: ABCIXIMAB
     Dosage: 3.3 ML/HOUR
     Route: 041
     Dates: start: 20140922, end: 20140922
  8. TAHOR [Suspect]
     Active Substance: ATORVASTATIN CALCIUM
     Dosage: 80 MG, 1X/DAY
     Route: 048
     Dates: start: 20140924, end: 20141001
  9. TRIATEC [Suspect]
     Active Substance: RAMIPRIL
     Dosage: 2.5 MG, 2X/DAY
     Route: 048
     Dates: start: 20140924, end: 20141001
  10. REOPRO [Suspect]
     Active Substance: ABCIXIMAB
     Dosage: 11.9 ML, UNK
     Route: 040
     Dates: start: 20140922, end: 20140922
  11. ASPEGIC [Concomitant]
     Active Substance: ASPIRIN DL-LYSINE
     Dosage: 250 MG, SINGLE
     Route: 040
     Dates: start: 20140922, end: 20140922
  12. EFFIENT [Suspect]
     Active Substance: PRASUGREL HYDROCHLORIDE
     Dosage: 10 MG, 1X/DAY
     Route: 048
     Dates: start: 20140922, end: 20141001
  13. RISORDAN [Suspect]
     Active Substance: ISOSORBIDE DINITRATE
     Dosage: 0.5 ML, SINGLE
     Route: 013
     Dates: start: 20140922, end: 20140922

REACTIONS (1)
  - Thrombocytopenia [Recovered/Resolved]

NARRATIVE: CASE EVENT DATE: 20141001
